FAERS Safety Report 14842692 (Version 11)
Quarter: 2022Q1

REPORT INFORMATION
  Report Type: Spontaneous
  Country: CA (occurrence: CA)
  Receive Date: 20180503
  Receipt Date: 20220203
  Transmission Date: 20220424
  Serious: Yes (Other)
  Sender: FDA-Public Use
  Company Number: CA-CELLTRION INC.-2018CA017871

PATIENT

DRUGS (31)
  1. INFLIXIMAB [Suspect]
     Active Substance: INFLIXIMAB
     Indication: Colitis ulcerative
     Dosage: 250 MG (EVERY 0, 2, 6 WEEKS, THEN EVERY 8 WEEKS)
     Route: 042
     Dates: start: 20180115, end: 20180807
  2. INFLIXIMAB [Suspect]
     Active Substance: INFLIXIMAB
     Dosage: 250 MG (EVERY 0, 2, 6 WEEKS, THEN EVERY 8 WEEKS)
     Route: 042
     Dates: start: 20180131
  3. INFLIXIMAB [Suspect]
     Active Substance: INFLIXIMAB
     Dosage: 250 MG (EVERY 0, 2, 6 WEEKS, THEN EVERY 8 WEEKS)
     Route: 042
     Dates: start: 20180228
  4. INFLIXIMAB [Suspect]
     Active Substance: INFLIXIMAB
     Dosage: 250 MG (EVERY 0, 2, 6 WEEKS, THEN EVERY 8 WEEKS)
     Route: 042
     Dates: start: 20180425
  5. INFLIXIMAB [Suspect]
     Active Substance: INFLIXIMAB
     Dosage: 250 MG (EVERY 0, 2, 6 WEEKS, THEN EVERY 8 WEEKS)
     Route: 042
     Dates: start: 20180807
  6. INFLIXIMAB [Suspect]
     Active Substance: INFLIXIMAB
     Dosage: 5 MG/KG EVERY 8 WEEKS
     Route: 042
     Dates: start: 20181002, end: 20190128
  7. INFLIXIMAB [Suspect]
     Active Substance: INFLIXIMAB
     Dosage: 5 MG/KG EVERY 8 WEEKS
     Route: 042
     Dates: start: 20181203
  8. INFLIXIMAB [Suspect]
     Active Substance: INFLIXIMAB
     Dosage: 5MG/KG EVERY 8 WEEKS
     Route: 042
     Dates: start: 20190128
  9. INFLIXIMAB [Suspect]
     Active Substance: INFLIXIMAB
     Dosage: 5 MG/KG EVERY 6 WEEKS
     Route: 042
     Dates: start: 20190313
  10. INFLIXIMAB [Suspect]
     Active Substance: INFLIXIMAB
     Dosage: 5 MG/KG EVERY 6 WEEKS
     Route: 042
     Dates: start: 20190715
  11. INFLIXIMAB [Suspect]
     Active Substance: INFLIXIMAB
     Dosage: 5 MG/KG EVERY 6 WEEKS
     Route: 042
     Dates: start: 20190828
  12. INFLIXIMAB [Suspect]
     Active Substance: INFLIXIMAB
     Dosage: 5 MG/KG EVERY 6 WEEKS
     Route: 042
     Dates: start: 20191007
  13. INFLIXIMAB [Suspect]
     Active Substance: INFLIXIMAB
     Dosage: 5 MG/KG EVERY 6 WEEKS
     Route: 042
     Dates: start: 20191118
  14. INFLIXIMAB [Suspect]
     Active Substance: INFLIXIMAB
     Dosage: 5 MG/KG EVERY 6 WEEKS
     Route: 042
     Dates: start: 20200616
  15. INFLIXIMAB [Suspect]
     Active Substance: INFLIXIMAB
     Dosage: 5 MG/KG EVERY 6 WEEKS
     Route: 042
     Dates: start: 20200727
  16. INFLIXIMAB [Suspect]
     Active Substance: INFLIXIMAB
     Dosage: 5 MG/KG EVERY 6 WEEKS
     Route: 042
     Dates: start: 20200727
  17. INFLIXIMAB [Suspect]
     Active Substance: INFLIXIMAB
     Dosage: 5 MG/KG EVERY 6 WEEKS
     Route: 042
     Dates: start: 20210113
  18. INFLIXIMAB [Suspect]
     Active Substance: INFLIXIMAB
     Dosage: 5 MG/KG EVERY 6 WEEKS
     Route: 042
     Dates: start: 20210223
  19. INFLIXIMAB [Suspect]
     Active Substance: INFLIXIMAB
     Dosage: 5 MG/KG EVERY 6 WEEKS
     Route: 042
     Dates: start: 20210223
  20. INFLIXIMAB [Suspect]
     Active Substance: INFLIXIMAB
     Dosage: 5 MG/KG EVERY 6 WEEKS
     Route: 042
     Dates: start: 20210406
  21. INFLIXIMAB [Suspect]
     Active Substance: INFLIXIMAB
     Dosage: 5 MG/KG EVERY 6 WEEKS
     Route: 042
     Dates: start: 20210518
  22. INFLIXIMAB [Suspect]
     Active Substance: INFLIXIMAB
     Dosage: 5 MG/KG EVERY 6 WEEKS
     Route: 042
     Dates: start: 20210921
  23. INFLIXIMAB [Suspect]
     Active Substance: INFLIXIMAB
     Dosage: 5 MG/KG EVERY 6 WEEKS
     Route: 042
     Dates: start: 20211101
  24. INFLIXIMAB [Suspect]
     Active Substance: INFLIXIMAB
     Dosage: 300 MG EVERY 6 WEEKS
     Route: 042
     Dates: start: 20211214
  25. INFLIXIMAB [Suspect]
     Active Substance: INFLIXIMAB
     Dosage: 5 MG/KG EVERY 6 WEEKS
     Route: 042
     Dates: start: 20210810
  26. INFLIXIMAB [Suspect]
     Active Substance: INFLIXIMAB
     Dosage: 300 MG EVERY 6 WEEKS
     Route: 042
     Dates: start: 20220125
  27. DIPHENHYDRAMINE [Concomitant]
     Active Substance: DIPHENHYDRAMINE
     Indication: Premedication
     Dosage: 50 MG, UNK
     Route: 048
     Dates: start: 20190313, end: 20190313
  28. DIPHENHYDRAMINE [Concomitant]
     Active Substance: DIPHENHYDRAMINE
     Dosage: 50 MG, UNK
     Dates: start: 20200727, end: 20200727
  29. HYDROCORTISONE [Concomitant]
     Active Substance: HYDROCORTISONE
     Indication: Premedication
     Dosage: 100 MG, UNK
     Route: 042
     Dates: start: 20190313, end: 20190313
  30. HYDROCORTISONE [Concomitant]
     Active Substance: HYDROCORTISONE
     Dosage: 100 MG, UNK
     Dates: start: 20200727, end: 20200727
  31. PREDNISONE [Concomitant]
     Active Substance: PREDNISONE
     Dosage: 40 MG FOR 3 WEEKS QD (DAILY) THEN TAPER 1 TAB EVERY 2 WEEKS UNTIL FINISHED
     Route: 048
     Dates: start: 20171215, end: 2018

REACTIONS (11)
  - Clostridium difficile infection [Not Recovered/Not Resolved]
  - Drug level below therapeutic [Unknown]
  - Condition aggravated [Not Recovered/Not Resolved]
  - Weight increased [Unknown]
  - Weight decreased [Unknown]
  - Blood pressure fluctuation [Unknown]
  - Acne [Not Recovered/Not Resolved]
  - Heart rate decreased [Recovered/Resolved]
  - Stress [Unknown]
  - Incorrect dose administered [Unknown]
  - Off label use [Unknown]

NARRATIVE: CASE EVENT DATE: 20180101
